FAERS Safety Report 6399031-4 (Version None)
Quarter: 2009Q4

REPORT INFORMATION
  Report Type: 
  Country: None (occurrence: None)
  Receive Date: 20091013
  Receipt Date: 20091013
  Transmission Date: 20100525
  Serious: No
  Sender: FDA-Public Use
  Company Number: US-RB-020549-09

PATIENT
  Age: 30 Year
  Sex: Male

DRUGS (2)
  1. SUBUTEX [Suspect]
     Route: 060
     Dates: start: 20090201
  2. BENZODIAZEPINES [Concomitant]
     Indication: DRUG USE FOR UNKNOWN INDICATION
     Dosage: DOSING INFORMATION UNKNOWN
     Route: 065

REACTIONS (3)
  - CELLULITIS [None]
  - FEELING ABNORMAL [None]
  - OROPHARYNGEAL PAIN [None]
